FAERS Safety Report 24629064 (Version 2)
Quarter: 2024Q4

REPORT INFORMATION
  Report Type: Spontaneous
  Country: KR (occurrence: KR)
  Receive Date: 20241118
  Receipt Date: 20241127
  Transmission Date: 20250115
  Serious: No
  Sender: AMGEN
  Company Number: KR-PFIZER INC-202400299912

PATIENT
  Age: 36 Year
  Sex: Male
  Weight: 52 kg

DRUGS (1)
  1. ENBREL [Suspect]
     Active Substance: ETANERCEPT
     Indication: Ankylosing spondylitis
     Dosage: 50 MG, ONCE IN 8 OR 9 DAYS
     Route: 065
     Dates: start: 2019, end: 202411

REACTIONS (2)
  - Dental caries [Recovered/Resolved]
  - Off label use [Unknown]

NARRATIVE: CASE EVENT DATE: 20190101
